FAERS Safety Report 5151297-4 (Version None)
Quarter: 2006Q4

REPORT INFORMATION
  Report Type: 
  Country: None (occurrence: None)
  Receive Date: 20061114
  Receipt Date: 20061114
  Transmission Date: 20070319
  Serious: Yes (Other)
  Sender: FDA-Public Use
  Company Number: None

PATIENT
  Age: 59 Year
  Sex: Female
  Weight: 73.4827 kg

DRUGS (2)
  1. EQUATE     500MG      PERRIGO [Suspect]
     Indication: MYALGIA
     Dosage: 2 CAPLETS    PO
     Route: 048
     Dates: start: 20061013, end: 20061014
  2. EQUATE     500MG      PERRIGO [Suspect]
     Indication: MYALGIA
     Dosage: 2 CAPLETS    PO
     Route: 048
     Dates: start: 20061021, end: 20061022

REACTIONS (2)
  - ABDOMINAL DISCOMFORT [None]
  - HAEMATOCHEZIA [None]
